FAERS Safety Report 8394585-0 (Version None)
Quarter: 2012Q1

REPORT INFORMATION
  Report Type: 
  Country: None (occurrence: None)
  Receive Date: 20120323
  Receipt Date: 20110504
  Transmission Date: 20120608
  Serious: Yes (Hospitalization)
  Sender: FDA-Public Use
  Company Number: 163-21880-11050639

PATIENT
  Sex: Female

DRUGS (6)
  1. MAXALT [Concomitant]
  2. REVLIMID [Suspect]
     Indication: MULTIPLE MYELOMA
     Dosage: 25 MG, DAILY 14 DAYS, PO
     Route: 048
     Dates: start: 20100625
  3. ACYCLOVIR [Concomitant]
  4. VYTORIN [Concomitant]
  5. VELCADE (BORRTEZOMIB) [Concomitant]
  6. VERAPAMIL [Concomitant]

REACTIONS (4)
  - HIP FRACTURE [None]
  - GASTROENTERITIS VIRAL [None]
  - ASTHENIA [None]
  - DYSPNOEA [None]
